FAERS Safety Report 12190899 (Version 1)
Quarter: 2016Q1

REPORT INFORMATION
  Report Type: Spontaneous
  Country: BR (occurrence: BR)
  Receive Date: 20160318
  Receipt Date: 20160318
  Transmission Date: 20160526
  Serious: Yes (Other)
  Sender: FDA-Public Use
  Company Number: BR-PFIZER INC-2016157438

PATIENT
  Age: 76 Year
  Sex: Male

DRUGS (1)
  1. LYRICA [Suspect]
     Active Substance: PREGABALIN
     Indication: NEURALGIA
     Dosage: 2 DF, 2 CAPSULES A DAY
     Route: 048

REACTIONS (5)
  - Malaise [Unknown]
  - Pulmonary oedema [Unknown]
  - Dysuria [Unknown]
  - Urethral obstruction [Unknown]
  - Insomnia [Unknown]
